FAERS Safety Report 12356022 (Version 1)
Quarter: 2016Q2

REPORT INFORMATION
  Report Type: Spontaneous
  Country: US (occurrence: US)
  Receive Date: 20160511
  Receipt Date: 20160511
  Transmission Date: 20160815
  Serious: Yes (Other)
  Sender: FDA-Public Use
  Company Number: US-MDT-ADR-2016-00436

PATIENT
  Age: 24 Year
  Sex: Male

DRUGS (6)
  1. KEPPRA [Suspect]
     Active Substance: LEVETIRACETAM
  2. GABAPENTIN. [Suspect]
     Active Substance: GABAPENTIN
  3. REMERON [Suspect]
     Active Substance: MIRTAZAPINE
  4. MS CONTIN [Suspect]
     Active Substance: MORPHINE SULFATE
  5. BACLOFEN. [Suspect]
     Active Substance: BACLOFEN
     Dosage: 790.9MCG/DAY
     Route: 037
  6. PREACID [Suspect]
     Active Substance: UNSPECIFIED INGREDIENT

REACTIONS (4)
  - Therapy cessation [None]
  - Tremor [Recovered/Resolved]
  - Device alarm issue [None]
  - Drug withdrawal syndrome [Recovered/Resolved]

NARRATIVE: CASE EVENT DATE: 20160227
